FAERS Safety Report 11164351 (Version 1)
Quarter: 2015Q2

REPORT INFORMATION
  Report Type: Spontaneous
  Country: US (occurrence: US)
  Receive Date: 20150604
  Receipt Date: 20150604
  Transmission Date: 20150821
  Serious: No
  Sender: FDA-Public Use
  Company Number: US-PFIZER INC-2015185465

PATIENT
  Sex: Male

DRUGS (2)
  1. LYRICA [Suspect]
     Active Substance: PREGABALIN
     Dosage: 50 MG, TWO IN THE MORNING ONE IN THE EVENING
     Dates: start: 2015, end: 2015
  2. LYRICA [Suspect]
     Active Substance: PREGABALIN
     Dosage: 50 MG, 1X/DAY (MORNING)
     Dates: start: 2015, end: 2015

REACTIONS (4)
  - Fatigue [Unknown]
  - Balance disorder [Unknown]
  - Vision blurred [Unknown]
  - Dyspnoea [Unknown]
